FAERS Safety Report 5755859-2 (Version None)
Quarter: 2008Q2

REPORT INFORMATION
  Report Type: 
  Country: None (occurrence: None)
  Receive Date: 20080528
  Receipt Date: 20080502
  Transmission Date: 20081010
  Serious: Yes (Hospitalization, Other)
  Sender: FDA-Public Use
  Company Number: 2008S1005721

PATIENT
  Age: 54 Year
  Sex: Female

DRUGS (7)
  1. FUROSEMIDE [Suspect]
     Indication: CARDIAC FAILURE CONGESTIVE
     Dosage: 40 MG DAILY ORAL
     Route: 048
     Dates: start: 20080315, end: 20080329
  2. FUROSEMIDE [Suspect]
     Indication: OEDEMA
     Dosage: 40 MG DAILY ORAL
     Route: 048
     Dates: start: 20080315, end: 20080329
  3. FUROSEMIDE [Suspect]
     Indication: CARDIAC FAILURE CONGESTIVE
     Dosage: 40 MG DAILY ORAL
     Route: 048
     Dates: start: 20080402, end: 20080404
  4. FUROSEMIDE [Suspect]
     Indication: OEDEMA
     Dosage: 40 MG DAILY ORAL
     Route: 048
     Dates: start: 20080402, end: 20080404
  5. INSULIN [Concomitant]
  6. GABAPENTIN [Concomitant]
  7. ANTIHYPERTENSIVES [Concomitant]

REACTIONS (5)
  - DRUG INEFFECTIVE [None]
  - DYSPNOEA [None]
  - FLUID RETENTION [None]
  - GENERALISED OEDEMA [None]
  - URINE OUTPUT DECREASED [None]
